FAERS Safety Report 16705656 (Version 2)
Quarter: 2019Q3

REPORT INFORMATION
  Report Type: Spontaneous
  Country: US (occurrence: US)
  Receive Date: 20190815
  Receipt Date: 20190918
  Transmission Date: 20191004
  Serious: Yes (Hospitalization, Other)
  Sender: FDA-Public Use
  Company Number: US-009507513-1908USA002692

PATIENT
  Age: 69 Year
  Sex: Male
  Weight: 87.53 kg

DRUGS (3)
  1. ZETIA [Suspect]
     Active Substance: EZETIMIBE
     Indication: BLOOD CHOLESTEROL INCREASED
     Dosage: 10 MILLIGRAM, DAILY
     Route: 048
     Dates: start: 20181126, end: 20190802
  2. LIPITOR [Suspect]
     Active Substance: ATORVASTATIN CALCIUM
     Dosage: UNK
     Dates: end: 2019
  3. ZETIA [Suspect]
     Active Substance: EZETIMIBE
     Indication: CORONARY ARTERY DISEASE

REACTIONS (4)
  - Pain [Not Recovered/Not Resolved]
  - Pancreatitis acute [Recovered/Resolved]
  - Myalgia [Not Recovered/Not Resolved]
  - Product use in unapproved indication [Unknown]

NARRATIVE: CASE EVENT DATE: 20181126
